FAERS Safety Report 16749025 (Version 1)
Quarter: 2019Q3

REPORT INFORMATION
  Report Type: Spontaneous
  Country: PT (occurrence: PT)
  Receive Date: 20190828
  Receipt Date: 20190828
  Transmission Date: 20191005
  Serious: Yes (Hospitalization, Disabling, Other)
  Sender: FDA-Public Use
  Company Number: PT-AUROBINDO-AUR-APL-2019-044818

PATIENT

DRUGS (14)
  1. BOSENTAN FILM COATED TABLETS [Suspect]
     Active Substance: BOSENTAN
     Indication: OVERLAP SYNDROME
     Dosage: UNK
     Route: 048
  2. SILDENAFIL. [Suspect]
     Active Substance: SILDENAFIL
     Indication: VASODILATATION
     Dosage: UNK
     Route: 065
  3. PREDNISOLONE. [Concomitant]
     Active Substance: PREDNISOLONE
     Indication: PRODUCT USED FOR UNKNOWN INDICATION
     Dosage: 1 MILLIGRAM/KILOGRAM, ONCE A DAY
     Route: 065
  4. BOSENTAN FILM COATED TABLETS [Suspect]
     Active Substance: BOSENTAN
     Indication: VASODILATATION
  5. VENTAVIS [Suspect]
     Active Substance: ILOPROST
     Indication: VASODILATATION
     Dosage: 1 DOSAGE FORM, 1 MONTH
     Route: 055
  6. VENTAVIS [Suspect]
     Active Substance: ILOPROST
     Indication: PULMONARY ARTERIAL HYPERTENSION
  7. VENTAVIS [Suspect]
     Active Substance: ILOPROST
     Indication: PULMONARY FIBROSIS
     Dosage: 1 DOSAGE FORM, 1 MONTH
     Route: 042
  8. NIFEDIPINE. [Suspect]
     Active Substance: NIFEDIPINE
     Indication: VASODILATATION
     Dosage: UNK
     Route: 065
  9. PENTOXIFYLLINE. [Suspect]
     Active Substance: PENTOXIFYLLINE
     Indication: VASODILATATION
     Dosage: UNK
     Route: 065
  10. NITROGLYCERIN. [Suspect]
     Active Substance: NITROGLYCERIN
     Indication: VASODILATATION
     Dosage: UNK
     Route: 065
  11. SILDENAFIL. [Suspect]
     Active Substance: SILDENAFIL
     Indication: PULMONARY ARTERIAL HYPERTENSION
  12. AZATHIOPRINE. [Concomitant]
     Active Substance: AZATHIOPRINE
     Indication: PRODUCT USED FOR UNKNOWN INDICATION
     Dosage: UNK
     Route: 065
  13. CYCLOPHOSPHAMIDE. [Concomitant]
     Active Substance: CYCLOPHOSPHAMIDE
     Indication: PRODUCT USED FOR UNKNOWN INDICATION
     Dosage: UNK
     Route: 065
  14. METHYLPREDNISOLONE. [Concomitant]
     Active Substance: METHYLPREDNISOLONE
     Indication: PRODUCT USED FOR UNKNOWN INDICATION
     Dosage: UNK
     Route: 065

REACTIONS (8)
  - Drug ineffective for unapproved indication [Unknown]
  - Haematotoxicity [Unknown]
  - Pneumonia [Unknown]
  - Respiratory disorder [Unknown]
  - Extremity necrosis [Unknown]
  - Finger amputation [Unknown]
  - Sepsis [Unknown]
  - Nervous system disorder [Unknown]
